FAERS Safety Report 24832236 (Version 1)
Quarter: 2025Q1

REPORT INFORMATION
  Report Type: Spontaneous
  Country: JP (occurrence: JP)
  Receive Date: 20250110
  Receipt Date: 20250110
  Transmission Date: 20250409
  Serious: Yes (Other)
  Sender: PFIZER
  Company Number: JP-PFIZER INC-PV202500002202

PATIENT
  Age: 53 Year
  Sex: Female

DRUGS (2)
  1. HYDROCORTISONE [Suspect]
     Active Substance: HYDROCORTISONE
     Indication: Dermatitis
  2. BETAMETHASONE [Suspect]
     Active Substance: BETAMETHASONE
     Indication: Dermatitis

REACTIONS (2)
  - Acute generalised exanthematous pustulosis [Unknown]
  - Drug hypersensitivity [Unknown]
